FAERS Safety Report 6829808-X (Version None)
Quarter: 2010Q3

REPORT INFORMATION
  Report Type: 
  Country: None (occurrence: None)
  Receive Date: 20100709
  Receipt Date: 20090522
  Transmission Date: 20110219
  Serious: Yes (Other)
  Sender: FDA-Public Use
  Company Number: US-PFIZER INC-2007008422

PATIENT
  Sex: Female
  Weight: 27.22 kg

DRUGS (7)
  1. CHANTIX [Suspect]
     Indication: SMOKING CESSATION THERAPY
     Dates: start: 20070112, end: 20070101
  2. CHANTIX [Suspect]
     Dosage: UNK
     Dates: start: 20090416
  3. WELLBUTRIN [Concomitant]
     Dosage: UNK
  4. ZYRTEC [Concomitant]
     Dosage: UNK
  5. ALL OTHER THERAPEUTIC PRODUCTS [Concomitant]
     Dosage: UNK
  6. BENZODIAZEPINE DERIVATIVES [Concomitant]
     Dosage: UNK
  7. PREVACID [Concomitant]
     Dosage: UNK

REACTIONS (8)
  - ANXIETY [None]
  - EYELID PTOSIS [None]
  - IMPATIENCE [None]
  - NAUSEA [None]
  - NIGHT SWEATS [None]
  - POOR QUALITY SLEEP [None]
  - PRURITUS [None]
  - SOMNOLENCE [None]
